FAERS Safety Report 19698482 (Version 3)
Quarter: 2021Q3

REPORT INFORMATION
  Report Type: Spontaneous
  Country: US (occurrence: US)
  Receive Date: 20210813
  Receipt Date: 20210915
  Transmission Date: 20211014
  Serious: No
  Sender: FDA-Public Use
  Company Number: US-PFIZER INC-2021907812

PATIENT
  Age: 7 Year
  Sex: Male

DRUGS (1)
  1. GENOTROPIN [Suspect]
     Active Substance: SOMATROPIN
     Indication: SHORT STATURE
     Dosage: 0.4 MG ONCE A DAY; THIS WAS THE INTRODUCTORY DOSE AND IS LIKELY TO GO UP
     Dates: start: 202105

REACTIONS (3)
  - Device breakage [Unknown]
  - Drug dose omission by device [Unknown]
  - Device malfunction [Unknown]

NARRATIVE: CASE EVENT DATE: 202107
